FAERS Safety Report 8163508-1 (Version None)
Quarter: 2012Q1

REPORT INFORMATION
  Report Type: 
  Country: None (occurrence: None)
  Receive Date: 20120224
  Receipt Date: 20120213
  Transmission Date: 20120608
  Serious: Yes (Hospitalization)
  Sender: FDA-Public Use
  Company Number: JP-MERCK-1201USA03304

PATIENT
  Age: 75 Year
  Sex: Female

DRUGS (3)
  1. ONEALFA [Concomitant]
     Indication: OSTEOPOROSIS
     Route: 048
     Dates: start: 20080101
  2. FOSAMAX [Suspect]
     Indication: OSTEOPOROSIS
     Route: 048
     Dates: start: 20080101, end: 20120101
  3. FAMOTIDINE [Concomitant]
     Route: 048

REACTIONS (1)
  - FEMUR FRACTURE [None]
